FAERS Safety Report 5668655-1 (Version None)
Quarter: 2008Q1

REPORT INFORMATION
  Report Type: 
  Country: None (occurrence: None)
  Receive Date: 20080315
  Receipt Date: 20080228
  Transmission Date: 20080703
  Serious: No
  Sender: FDA-Public Use
  Company Number: US-ABBOTT-08P-163-0440713-00

PATIENT
  Sex: Female

DRUGS (1)
  1. HUMIRA [Suspect]
     Indication: PSORIASIS
     Route: 058
     Dates: start: 20080214

REACTIONS (6)
  - ERYTHEMA [None]
  - FEELING HOT [None]
  - HAEMORRHAGE [None]
  - OEDEMA PERIPHERAL [None]
  - SCRATCH [None]
  - SKIN LACERATION [None]
